FAERS Safety Report 6911220-6 (Version None)
Quarter: 2010Q3

REPORT INFORMATION
  Report Type: 
  Country: None (occurrence: None)
  Receive Date: 20100806
  Receipt Date: 20100727
  Transmission Date: 20110219
  Serious: Yes (Hospitalization)
  Sender: FDA-Public Use
  Company Number: NL-ABBOTT-10P-114-0659980-00

PATIENT
  Sex: Male
  Weight: 110 kg

DRUGS (6)
  1. HUMIRA [Suspect]
     Indication: ANKYLOSING SPONDYLITIS
     Route: 058
     Dates: start: 20050601
  2. CHOLCHICINE [Concomitant]
     Indication: ANKYLOSING SPONDYLITIS
     Route: 048
  3. DEXAMATHASONE/GENTAMICIN EYE DROPS [Concomitant]
     Indication: EYE INFLAMMATION
     Dosage: 1 DROP IN EACH EYE DAILY, 1/3MG PER ML
     Route: 047
  4. IBUPROFEN TABLET MGA [Concomitant]
     Indication: PAIN
     Route: 048
  5. PANTOPRAZOLE TABLET MSR [Concomitant]
     Indication: GASTRIC DISORDER
     Route: 048
  6. PANTOPRAZOLE TABLET MSR [Concomitant]
     Indication: PROPHYLAXIS

REACTIONS (3)
  - INCORRECT DRUG ADMINISTRATION DURATION [None]
  - INFLAMMATION [None]
  - TYPE 2 DIABETES MELLITUS [None]
